FAERS Safety Report 9261372 (Version 2)
Quarter: 2014Q1

REPORT INFORMATION
  Report Type: Spontaneous
  Country: US (occurrence: None)
  Receive Date: 20121212
  Receipt Date: 20130314
  Transmission Date: 20141002
  Serious: No
  Sender: FDA-Public Use
  Company Number: 1209USA002069

PATIENT
  Age: 48 Year
  Sex: Female
  Weight: 55.8 kg

DRUGS (3)
  1. VICTRELIS [Suspect]
     Indication: HEPATITIS C
     Dates: start: 20120903, end: 20121125
  2. RIBAVIRIN [Suspect]
     Indication: HEPATITIS C
     Dates: start: 20120813, end: 20121125
  3. PEGASYS (PEGINTERFERON ALFA-2A) [Suspect]
     Indication: HEPATITIS C
     Dates: start: 20120813, end: 20121125

REACTIONS (14)
  - Memory impairment [None]
  - Fungal infection [None]
  - Balance disorder [None]
  - Weight decreased [None]
  - Dysgeusia [None]
  - Nausea [None]
  - Dysgeusia [None]
  - Back pain [None]
  - Arthralgia [None]
  - Dizziness [None]
  - Pain in extremity [None]
  - Drug ineffective [None]
  - Alopecia [None]
  - Malaise [None]
